FAERS Safety Report 4902765-9 (Version None)
Quarter: 2006Q1

REPORT INFORMATION
  Report Type: 
  Country: None (occurrence: None)
  Receive Date: 20060207
  Receipt Date: 20060130
  Transmission Date: 20060701
  Serious: Yes (Hospitalization)
  Sender: FDA-Public Use
  Company Number: US-JNJFOC-20051203445

PATIENT
  Sex: Male
  Weight: 69.85 kg

DRUGS (6)
  1. DURAGESIC-100 [Suspect]
     Indication: ARTHRITIS
     Route: 062
  2. DURAGESIC-100 [Suspect]
     Indication: FIBROMYALGIA
     Dosage: 2-25 UG/HR PATCHES
     Route: 062
  3. DURAGESIC-100 [Suspect]
     Route: 062
  4. ACIPHEX [Concomitant]
     Indication: GASTROINTESTINAL DISORDER
     Dates: start: 20051201
  5. HYDROCODONE/ACETAMINOPHEN [Concomitant]
  6. HYDROCODONE/ACETAMINOPHEN [Concomitant]

REACTIONS (6)
  - CONFUSIONAL STATE [None]
  - DRUG INEFFECTIVE [None]
  - GASTRIC DISORDER [None]
  - LETHARGY [None]
  - NAUSEA [None]
  - SEDATION [None]
